FAERS Safety Report 13287664 (Version 1)
Quarter: 2017Q1

REPORT INFORMATION
  Report Type: Spontaneous
  Country: GB (occurrence: GB)
  Receive Date: 20170302
  Receipt Date: 20170302
  Transmission Date: 20170428
  Serious: Yes (Life-Threatening, Hospitalization)
  Sender: FDA-Public Use
  Company Number: GB-MYLANLABS-2017M1012477

PATIENT

DRUGS (16)
  1. CALCICHEW D3 [Concomitant]
     Active Substance: CALCIUM\CHOLECALCIFEROL
  2. INDACATEROL [Concomitant]
     Active Substance: INDACATEROL
  3. CARBOCYSTEINE [Concomitant]
     Active Substance: CARBOCYSTEINE
  4. FUROSEMIDE. [Concomitant]
     Active Substance: FUROSEMIDE
  5. WARFARIN [Suspect]
     Active Substance: WARFARIN
     Dosage: UNK
     Dates: end: 20170131
  6. CARBOMER [Concomitant]
     Active Substance: CARBOMER
  7. DIGOXIN. [Concomitant]
     Active Substance: DIGOXIN
  8. CYCLIZINE [Concomitant]
     Active Substance: CYCLIZINE
  9. LATANOPROST. [Concomitant]
     Active Substance: LATANOPROST
  10. FLUTICASONE PROPIONATE. [Concomitant]
     Active Substance: FLUTICASONE PROPIONATE
  11. PARACETAMOL [Concomitant]
     Active Substance: ACETAMINOPHEN
  12. FERROUS FUMARATE [Concomitant]
     Active Substance: FERROUS FUMARATE
  13. TIOTROPIUM BROMIDE [Concomitant]
     Active Substance: TIOTROPIUM BROMIDE
  14. ATORVASTATIN [Concomitant]
     Active Substance: ATORVASTATIN
  15. OLANZAPINE. [Concomitant]
     Active Substance: OLANZAPINE
  16. SALBUTAMOL [Concomitant]
     Active Substance: ALBUTEROL

REACTIONS (2)
  - Haemorrhage intracranial [Recovering/Resolving]
  - Fall [Unknown]
